FAERS Safety Report 4534105-1 (Version None)
Quarter: 2004Q4

REPORT INFORMATION
  Report Type: 
  Country: None (occurrence: None)
  Receive Date: 20041221
  Receipt Date: 20041221
  Transmission Date: 20050328
  Serious: Yes (Other)
  Sender: FDA-Public Use
  Company Number: None

PATIENT
  Age: 73 Year
  Sex: Male
  Weight: 93 kg

DRUGS (7)
  1. GEMFIBROZIL [Suspect]
  2. OMEPRAZOLE [Concomitant]
  3. LISINOPRIL [Concomitant]
  4. METOPROLOL TARTRATE [Concomitant]
  5. NITROGLYCERIN [Concomitant]
  6. GEMFIBROZIL [Concomitant]
  7. CLOPIDOGREL BISULFATE [Concomitant]

REACTIONS (1)
  - MYALGIA [None]
